FAERS Safety Report 4472414-5 (Version None)
Quarter: 2004Q4

REPORT INFORMATION
  Report Type: 
  Country: None (occurrence: None)
  Receive Date: 20041007
  Receipt Date: 20041001
  Transmission Date: 20050328
  Serious: Yes (Other)
  Sender: FDA-Public Use
  Company Number: USA-2004-0017063

PATIENT
  Age: 48 Year
  Sex: Male

DRUGS (5)
  1. OXYCODONE HCL [Suspect]
     Indication: PAIN
     Dosage: ORAL
     Route: 048
  2. AMITRIPTYLINE HCL [Suspect]
  3. LORAZEPAM [Concomitant]
  4. ANALGESIC() [Suspect]
     Indication: PAIN
  5. ANALGESIC() [Suspect]
     Indication: PAIN

REACTIONS (15)
  - ARTHRALGIA [None]
  - BACK PAIN [None]
  - DRUG DEPENDENCE [None]
  - DRUG INEFFECTIVE [None]
  - GAIT DISTURBANCE [None]
  - JOINT RANGE OF MOTION DECREASED [None]
  - MUSCLE SPASMS [None]
  - NECK PAIN [None]
  - PAIN IN EXTREMITY [None]
  - POST PROCEDURAL PAIN [None]
  - REFLEXES ABNORMAL [None]
  - SEXUAL DYSFUNCTION [None]
  - SLEEP DISORDER [None]
  - SUICIDAL IDEATION [None]
  - TENDERNESS [None]
